FAERS Safety Report 9342938 (Version 2)
Quarter: 2013Q2

REPORT INFORMATION
  Report Type: Spontaneous
  Country: IL (occurrence: IL)
  Receive Date: 20130611
  Receipt Date: 20130617
  Transmission Date: 20140414
  Serious: Yes (Other)
  Sender: FDA-Public Use
  Company Number: IL-ABBOTT-13P-082-1101552-00

PATIENT
  Age: 65 Year
  Sex: Male

DRUGS (5)
  1. RITONAVIR [Suspect]
     Indication: HIV INFECTION
     Dates: start: 200702
  2. KALETRA [Suspect]
     Indication: HIV INFECTION
     Dosage: 400/100 MG
  3. DARUNAVIR [Suspect]
     Indication: HIV INFECTION
     Dates: start: 200702
  4. DIDANOSINE [Concomitant]
     Indication: HIV INFECTION
  5. ABACAVIR [Concomitant]
     Indication: HIV INFECTION

REACTIONS (3)
  - Demyelinating polyneuropathy [Recovered/Resolved]
  - Low density lipoprotein [Unknown]
  - Blood triglycerides increased [Unknown]
